FAERS Safety Report 7693710-4 (Version None)
Quarter: 2011Q3

REPORT INFORMATION
  Report Type: 
  Country: None (occurrence: None)
  Receive Date: 20110819
  Receipt Date: 20110810
  Transmission Date: 20111222
  Serious: Yes (Hospitalization)
  Sender: FDA-Public Use
  Company Number: US-JNJFOC-20110410269

PATIENT
  Sex: Male
  Weight: 56.8 kg

DRUGS (9)
  1. REMICADE [Suspect]
     Route: 042
     Dates: start: 20081022
  2. REMICADE [Suspect]
     Route: 042
     Dates: start: 20040204, end: 20060308
  3. MESALAMINE [Concomitant]
  4. AZATHIOPRINE [Concomitant]
  5. REMICADE [Suspect]
     Route: 042
     Dates: start: 20091206
  6. ANTIBIOTICS [Concomitant]
     Indication: INFLAMMATORY BOWEL DISEASE
  7. HYDROCODONE BITARTRATE AND ACETAMINOPHEN [Concomitant]
  8. HUMIRA [Concomitant]
     Dates: start: 20091208
  9. REMICADE [Suspect]
     Indication: CROHN'S DISEASE
     Route: 042
     Dates: start: 20090707

REACTIONS (2)
  - JOINT DISLOCATION [None]
  - CROHN'S DISEASE [None]
